FAERS Safety Report 5715348-8 (Version None)
Quarter: 2008Q2

REPORT INFORMATION
  Report Type: 
  Country: None (occurrence: None)
  Receive Date: 20080423
  Receipt Date: 20080411
  Transmission Date: 20081010
  Serious: Yes (Other)
  Sender: FDA-Public Use
  Company Number: DE-PFIZER INC-2008032275

PATIENT
  Sex: Female

DRUGS (3)
  1. LYRICA [Suspect]
     Indication: POLYNEUROPATHY
     Route: 048
     Dates: start: 20080320, end: 20080331
  2. ALL OTHER THERAPEUTIC PRODUCTS [Concomitant]
  3. VITAMINS [Concomitant]

REACTIONS (16)
  - ANXIETY [None]
  - BLOOD PRESSURE INCREASED [None]
  - DRY MOUTH [None]
  - DYSPHAGIA [None]
  - GAIT DISTURBANCE [None]
  - MUSCULOSKELETAL STIFFNESS [None]
  - PANIC ATTACK [None]
  - PARAESTHESIA [None]
  - PHARYNGEAL HYPOAESTHESIA [None]
  - RESPIRATORY DISORDER [None]
  - SALIVARY HYPERSECRETION [None]
  - SPEECH DISORDER [None]
  - TONGUE DISORDER [None]
  - TONGUE PARALYSIS [None]
  - TREMOR [None]
  - WITHDRAWAL SYNDROME [None]
